FAERS Safety Report 5292161-X (Version None)
Quarter: 2007Q2

REPORT INFORMATION
  Report Type: 
  Country: None (occurrence: None)
  Receive Date: 20070410
  Receipt Date: 20070404
  Transmission Date: 20071010
  Serious: Yes (Disabling)
  Sender: FDA-Public Use
  Company Number: DE-GLAXOSMITHKLINE-D0052830A

PATIENT
  Age: 54 Year
  Sex: Male
  Weight: 70 kg

DRUGS (5)
  1. AVANDAMET [Suspect]
     Dosage: 1002MG UNKNOWN
     Route: 048
     Dates: start: 20050101
  2. ANTI-HYPERLIPIDAEMIC (UNSPECIFIED) [Concomitant]
     Route: 048
  3. ASPIRIN [Concomitant]
     Dosage: 100MG UNKNOWN
     Route: 048
  4. RAMIPRIL [Concomitant]
     Route: 048
  5. BETA-BLOCKER [Concomitant]
     Route: 048

REACTIONS (1)
  - OSTEOPENIA [None]
